FAERS Safety Report 10377632 (Version 3)
Quarter: 2014Q3

REPORT INFORMATION
  Report Type: Spontaneous
  Country: JP (occurrence: JP)
  Receive Date: 20140812
  Receipt Date: 20140922
  Transmission Date: 20150326
  Serious: Yes (Hospitalization, Other)
  Sender: FDA-Public Use
  Company Number: PHHY2014JP096925

PATIENT
  Age: 62 Year
  Sex: Female
  Weight: 60 kg

DRUGS (4)
  1. NEORAL [Suspect]
     Active Substance: CYCLOSPORINE
     Indication: VOGT-KOYANAGI-HARADA SYNDROME
     Dosage: 175 MG, DAILY
     Route: 048
     Dates: start: 20140718, end: 20140729
  2. PREDONINE [Concomitant]
     Active Substance: PREDNISOLONE\PREDNISOLONE ACETATE\PREDNISOLONE SODIUM SUCCINATE
     Dosage: 50 MG/DAY, FOR ONE WEEK
     Route: 048
  3. PREDONINE [Concomitant]
     Active Substance: PREDNISOLONE\PREDNISOLONE ACETATE\PREDNISOLONE SODIUM SUCCINATE
     Dosage: 40 MG, FOR 2 DAYS
     Route: 048
  4. PREDONINE [Concomitant]
     Active Substance: PREDNISOLONE\PREDNISOLONE ACETATE\PREDNISOLONE SODIUM SUCCINATE
     Indication: VOGT-KOYANAGI-HARADA SYNDROME
     Dosage: 60 MG/ DAY, FOR ONE WEEK
     Route: 048
     Dates: start: 20140718

REACTIONS (11)
  - White blood cell count increased [Recovered/Resolved]
  - Hyponatraemia [Recovering/Resolving]
  - Blood chloride decreased [Recovering/Resolving]
  - Urine output decreased [Unknown]
  - Blood sodium decreased [Recovered/Resolved]
  - Hypotonia [Unknown]
  - Inappropriate antidiuretic hormone secretion [Unknown]
  - Blood potassium decreased [Recovered/Resolved]
  - Neoplasm malignant [Unknown]
  - Nausea [Unknown]
  - Vomiting [Unknown]

NARRATIVE: CASE EVENT DATE: 20140730
